FAERS Safety Report 9941576 (Version 1)
Quarter: 2014Q1

REPORT INFORMATION
  Report Type: Report from Study
  Country: US (occurrence: US)
  Receive Date: 20140303
  Receipt Date: 20140303
  Transmission Date: 20141002
  Serious: No
  Sender: FDA-Public Use
  Company Number: US-ABBVIE-13P-163-1039411-00

PATIENT
  Age: 82 Year
  Sex: Male

DRUGS (20)
  1. HUMIRA [Suspect]
     Indication: CROHN^S DISEASE
     Dates: start: 20120926
  2. INVITE MULTIVITAMIN [Concomitant]
     Indication: EYE DISORDER
  3. MINERAL SUPPLEMENT [Concomitant]
     Indication: EYE DISORDER
  4. ATENOLOL [Concomitant]
     Indication: BLOOD PRESSURE
  5. AMLODIPINE BESYLATE [Concomitant]
     Indication: BLOOD PRESSURE
  6. FLUNISOLIDE [Concomitant]
     Indication: HYPERSENSITIVITY
     Dosage: 1 SPRAY IN EACH NOSTRIL AS NEEDED
     Route: 045
  7. GABAPENTIN [Concomitant]
     Indication: NEURALGIA
     Route: 048
  8. MELOXICAM [Concomitant]
     Indication: CROHN^S DISEASE
  9. AZATHIOPRINE [Concomitant]
     Indication: ABDOMINAL DISCOMFORT
  10. ERGOCALCIFEROL SUPPLEMENT TO VITAMIN D [Concomitant]
     Indication: BONE DISORDER
  11. CYCLOBENZAPRINE HYDROCHLORIDE [Concomitant]
     Indication: MUSCLE SPASMS
     Dosage: AS NEEDED
  12. OMEPRAZOLE [Concomitant]
     Indication: GASTROOESOPHAGEAL REFLUX DISEASE
  13. CALCIUM [Concomitant]
     Indication: NUTRITIONAL SUPPLEMENTATION
  14. TRAMADOL [Concomitant]
     Indication: PAIN
     Dosage: AS NEEEDED
  15. ALBUT/IPRATROP [Concomitant]
     Indication: RESPIRATORY TRACT CONGESTION
     Dosage: NEBULIZER
  16. ALBUT/IPRATROP [Concomitant]
     Indication: DYSPNOEA
  17. MEMANTINE HYDROCHLORIDE [Concomitant]
     Indication: MEMORY IMPAIRMENT
  18. OXYBUTYNIN [Concomitant]
     Indication: PROSTATIC OPERATION
  19. RECLAST [Concomitant]
     Indication: BONE DISORDER
     Route: 042
  20. LOPERAMIDE [Concomitant]
     Indication: DIARRHOEA
     Dosage: AFTER EACH LOOSE STOOL

REACTIONS (3)
  - Drug dose omission [Recovering/Resolving]
  - Influenza [Recovering/Resolving]
  - Diarrhoea [Recovering/Resolving]
